FAERS Safety Report 14341741 (Version 1)
Quarter: 2017Q4

REPORT INFORMATION
  Report Type: Spontaneous
  Country: US (occurrence: US)
  Receive Date: 20171229
  Receipt Date: 20171229
  Transmission Date: 20180321
  Serious: Yes (Hospitalization)
  Sender: FDA-Public Use
  Company Number: None

PATIENT
  Age: 66 Year
  Sex: Male
  Weight: 88.9 kg

DRUGS (1)
  1. CARBOPLATIN 10MG/ML 60ML VIAL TEVA [Suspect]
     Active Substance: CARBOPLATIN
     Indication: LUNG NEOPLASM MALIGNANT
     Route: 042
     Dates: start: 20171017, end: 20171228

REACTIONS (1)
  - Rash [None]

NARRATIVE: CASE EVENT DATE: 20171226
